FAERS Safety Report 16774840 (Version 1)
Quarter: 2019Q3

REPORT INFORMATION
  Report Type: Spontaneous
  Country: US (occurrence: US)
  Receive Date: 20190715
  Receipt Date: 20190715
  Transmission Date: 20191005
  Serious: No
  Sender: FDA-Public Use
  Company Number: None

PATIENT
  Age: 50 Year
  Sex: Male
  Weight: 108.86 kg

DRUGS (2)
  1. PANZYGA [Suspect]
     Active Substance: HUMAN IMMUNOGLOBULIN G
     Indication: IMMUNODEFICIENCY
     Dosage: 50 GRAMS Q4WEEKS IV
     Route: 042
     Dates: start: 20190618, end: 20190618
  2. PANZYGA [Suspect]
     Active Substance: HUMAN IMMUNOGLOBULIN G
     Dosage: 50 GRAMS Q4WEEKS IV
     Route: 042
     Dates: start: 20190618, end: 20190618

REACTIONS (3)
  - Chest pain [None]
  - Headache [None]
  - Back pain [None]

NARRATIVE: CASE EVENT DATE: 20190618
